FAERS Safety Report 4682378-7 (Version None)
Quarter: 2005Q2

REPORT INFORMATION
  Report Type: 
  Country: None (occurrence: None)
  Receive Date: 20050602
  Receipt Date: 20050311
  Transmission Date: 20051028
  Serious: No
  Sender: FDA-Public Use
  Company Number: USA050393310

PATIENT
  Age: 49 Year
  Sex: Female

DRUGS (3)
  1. CYMBALTA [Suspect]
     Dosage: 60 MG
     Dates: start: 20041001
  2. PREMARIN [Concomitant]
  3. SEROQUEL [Concomitant]

REACTIONS (2)
  - DYSGEUSIA [None]
  - SEXUAL DYSFUNCTION [None]
